FAERS Safety Report 8897150 (Version 1)
Quarter: 2012Q4

REPORT INFORMATION
  Report Type: 
  Country: US (occurrence: US)
  Receive Date: 20121108
  Receipt Date: 20121108
  Transmission Date: 20130627
  Serious: No
  Sender: FDA-Public Use
  Company Number: US-AMGEN-USASP2012025689

PATIENT
  Sex: Female
  Weight: 69.39 kg

DRUGS (5)
  1. ENBREL [Suspect]
     Indication: PRODUCT USED FOR UNKNOWN INDICATION
     Dosage: 50 mg, qwk
     Route: 058
  2. PREDNISONE [Concomitant]
     Dosage: 1 mg, UNK
  3. IBUPROFEN [Concomitant]
     Dosage: 200 mg, UNK
  4. RANITIDINE [Concomitant]
     Dosage: 75 mg, UNK
  5. FOLIC ACID [Concomitant]
     Dosage: 1 mg, UNK

REACTIONS (2)
  - Increased appetite [Unknown]
  - Abdominal pain upper [Unknown]
